FAERS Safety Report 23131498 (Version 2)
Quarter: 2023Q4

REPORT INFORMATION
  Report Type: Spontaneous
  Country: US (occurrence: US)
  Receive Date: 20231031
  Receipt Date: 20231128
  Transmission Date: 20240110
  Serious: No
  Sender: FDA-Public Use
  Company Number: US-PFIZER INC-202300348371

PATIENT
  Age: 39 Year
  Sex: Male
  Weight: 129 kg

DRUGS (9)
  1. PROPOFOL [Suspect]
     Active Substance: PROPOFOL
     Indication: Anaesthesia
     Dosage: UNK
     Dates: start: 20231023, end: 20231023
  2. PROPOFOL [Suspect]
     Active Substance: PROPOFOL
     Dosage: UNK
     Dates: start: 20231023, end: 20231023
  3. PROPOFOL [Suspect]
     Active Substance: PROPOFOL
     Dosage: 562.46 MG, CONTINUOUS INFUSION
     Route: 042
     Dates: start: 20231023, end: 20231023
  4. PROPOFOL [Suspect]
     Active Substance: PROPOFOL
     Dosage: 562.46 MG, CONTINUOUS INFUSION
     Route: 042
     Dates: start: 20231023, end: 20231023
  5. PROPOFOL [Suspect]
     Active Substance: PROPOFOL
     Dosage: 562.46 MG, CONTINUOUS INFUSION
     Route: 042
     Dates: start: 20231023, end: 20231023
  6. PROPOFOL [Suspect]
     Active Substance: PROPOFOL
     Dosage: 562.46 MG, CONTINUOUS INFUSION
     Route: 042
     Dates: start: 20231023, end: 20231023
  7. MIDAZOLAM [Concomitant]
     Active Substance: MIDAZOLAM
     Dosage: 2 MG, SINGLE
     Route: 042
     Dates: start: 20231023, end: 20231023
  8. FENTANYL [Concomitant]
     Active Substance: FENTANYL\FENTANYL CITRATE
     Dosage: 100 UG, SINGLE
     Route: 042
     Dates: start: 20231023, end: 20231023
  9. KETAMIN [KETAMINE] [Concomitant]
     Dosage: 50 MG, SINGLE
     Route: 042
     Dates: start: 20231023, end: 20231023

REACTIONS (1)
  - Drug ineffective [Unknown]

NARRATIVE: CASE EVENT DATE: 20231023
